FAERS Safety Report 21360058 (Version 1)
Quarter: 2022Q3

REPORT INFORMATION
  Report Type: Spontaneous
  Country: DE (occurrence: DE)
  Receive Date: 20220921
  Receipt Date: 20220921
  Transmission Date: 20221027
  Serious: Yes (Other)
  Sender: FDA-Public Use
  Company Number: DE-MYLANLABS-2022M1091148

PATIENT
  Age: 29 Year
  Sex: Male
  Weight: 47 kg

DRUGS (4)
  1. BACLOFEN [Suspect]
     Active Substance: BACLOFEN
     Indication: Muscle spasticity
     Dosage: UNK 2-0.5-1.5 VIA PEG TUBE (OVER 20 YEARS)
     Route: 065
  2. ESOMEPRAZOLE [Concomitant]
     Active Substance: ESOMEPRAZOLE
     Indication: Gastrooesophageal reflux disease
     Dosage: 20 MILLIGRAM, QD, 1-0-0 APPR. 20 YEARS AGO VIA TUBE
     Route: 065
  3. LEFAX EXTRA [Concomitant]
     Dosage: UNK , PRN VIA TUBE AS NEEDED
     Route: 065
  4. MOVICOL [Concomitant]
     Active Substance: POLYETHYLENE GLYCOL 3350\POTASSIUM CHLORIDE\SODIUM BICARBONATE\SODIUM CHLORIDE
     Indication: Constipation
     Dosage: UNK 0.5-0-0 VIA TUBE APPRX. 20 YEARS AGO
     Route: 065

REACTIONS (4)
  - Colitis ulcerative [Unknown]
  - Flatulence [Unknown]
  - Product quality issue [Unknown]
  - Product odour abnormal [Unknown]
